FAERS Safety Report 23651953 (Version 3)
Quarter: 2024Q2

REPORT INFORMATION
  Report Type: Spontaneous
  Country: US (occurrence: US)
  Receive Date: 20240320
  Receipt Date: 20240407
  Transmission Date: 20240715
  Serious: No
  Sender: FDA-Public Use
  Company Number: US-AMGEN-USASP2024056434

PATIENT
  Age: 64 Year
  Sex: Male

DRUGS (2)
  1. REPATHA [Suspect]
     Active Substance: EVOLOCUMAB
     Indication: Blood cholesterol abnormal
     Dosage: 140 MILLIGRAM/MILLILITER, Q2WK
     Route: 065
  2. REPATHA [Suspect]
     Active Substance: EVOLOCUMAB
     Dosage: 140 MILLIGRAM/MILLILITER, Q2WK
     Route: 065

REACTIONS (2)
  - Injection site vesicles [Unknown]
  - Device difficult to use [Unknown]

NARRATIVE: CASE EVENT DATE: 20240316
